FAERS Safety Report 8083242-6 (Version None)
Quarter: 2012Q1

REPORT INFORMATION
  Report Type: 
  Country: None (occurrence: None)
  Receive Date: 20120127
  Receipt Date: 20110303
  Transmission Date: 20120608
  Serious: No
  Sender: FDA-Public Use
  Company Number: US-ABBOTT-11P-163-0709299-00

PATIENT
  Sex: Female

DRUGS (7)
  1. VICODIN [Concomitant]
     Indication: ARTHRALGIA
  2. HUMIRA [Suspect]
     Indication: RHEUMATOID ARTHRITIS
     Dates: start: 20110106
  3. LEXAPRO [Concomitant]
     Indication: MOOD ALTERED
  4. XANAX XR [Concomitant]
     Indication: ANXIETY
  5. IMIPRAMINE [Concomitant]
     Indication: INCONTINENCE
  6. EVOXAC [Concomitant]
     Indication: DRY MOUTH
  7. EVOXAC [Concomitant]
     Indication: DRY EYE

REACTIONS (2)
  - DRUG INEFFECTIVE [None]
  - BACK PAIN [None]
